FAERS Safety Report 12590462 (Version 1)
Quarter: 2016Q3

REPORT INFORMATION
  Report Type: Report from Study
  Country: US (occurrence: US)
  Receive Date: 20160725
  Receipt Date: 20160725
  Transmission Date: 20161109
  Serious: No
  Sender: FDA-Public Use
  Company Number: US-AMGEN-USASL2016094586

PATIENT
  Age: 49 Year
  Sex: Female

DRUGS (1)
  1. ENBREL [Suspect]
     Active Substance: ETANERCEPT
     Indication: RHEUMATOID ARTHRITIS
     Dosage: 50 MG, QWK
     Route: 065
     Dates: start: 20160614

REACTIONS (9)
  - Condition aggravated [Unknown]
  - Pain [Unknown]
  - Rubber sensitivity [Unknown]
  - Injection site urticaria [Unknown]
  - Fatigue [Unknown]
  - Injection site reaction [Unknown]
  - Malaise [Unknown]
  - Injection site discolouration [Unknown]
  - Injection site swelling [Unknown]

NARRATIVE: CASE EVENT DATE: 2016
